FAERS Safety Report 6153939-3 (Version None)
Quarter: 2009Q2

REPORT INFORMATION
  Report Type: 
  Country: None (occurrence: None)
  Receive Date: 20090409
  Receipt Date: 20090409
  Transmission Date: 20091009
  Serious: Yes (Hospitalization)
  Sender: FDA-Public Use
  Company Number: None

PATIENT
  Sex: Female
  Weight: 63.18 kg

DRUGS (8)
  1. TEMOZOLOMIDE [Suspect]
     Dosage: 3780 MG
  2. COUMADIN [Concomitant]
  3. DILANTIN [Concomitant]
  4. FAMOTIDINE [Concomitant]
  5. KEPPRA [Concomitant]
  6. MEGACE [Concomitant]
  7. SYNTHROID [Concomitant]
  8. ZANTAC [Concomitant]

REACTIONS (1)
  - PACKED RED BLOOD CELL TRANSFUSION [None]
